FAERS Safety Report 11108745 (Version 1)
Quarter: 2015Q2

REPORT INFORMATION
  Report Type: Spontaneous
  Country: US (occurrence: None)
  Receive Date: 20150511
  Receipt Date: 20150511
  Transmission Date: 20150821
  Serious: No
  Sender: FDA-Public Use
  Company Number: None

PATIENT
  Age: 41 Year
  Sex: Female
  Weight: 49.9 kg

DRUGS (10)
  1. CIPRO [Suspect]
     Active Substance: CIPROFLOXACIN HYDROCHLORIDE
     Indication: SINUSITIS
     Dosage: 1 PILL
     Route: 048
     Dates: start: 201108, end: 201409
  2. TRIMODAL [Concomitant]
  3. BENADRYL [Concomitant]
     Active Substance: DIPHENHYDRAMINE HYDROCHLORIDE
  4. CIPRO [Suspect]
     Active Substance: CIPROFLOXACIN HYDROCHLORIDE
     Indication: BRONCHITIS
     Dosage: 1 PILL
     Route: 048
     Dates: start: 201108, end: 201409
  5. FLONASE [Concomitant]
     Active Substance: FLUTICASONE PROPIONATE
  6. FLEXERIL [Concomitant]
     Active Substance: CYCLOBENZAPRINE HYDROCHLORIDE
  7. METOPROLOL [Suspect]
     Active Substance: METOPROLOL
  8. HYDROCODONE [Concomitant]
     Active Substance: HYDROCODONE
  9. BAYER ASPIRIN [Concomitant]
     Active Substance: ASPIRIN
  10. GAPENTIN [Concomitant]

REACTIONS (6)
  - Neuropathy peripheral [None]
  - Lacrimation increased [None]
  - Dysstasia [None]
  - Gait disturbance [None]
  - Back pain [None]
  - Arthralgia [None]

NARRATIVE: CASE EVENT DATE: 20110827
